FAERS Safety Report 10181429 (Version 1)
Quarter: 2014Q2

REPORT INFORMATION
  Report Type: Spontaneous
  Country: ES (occurrence: ES)
  Receive Date: 20140519
  Receipt Date: 20140519
  Transmission Date: 20141212
  Serious: Yes (Other)
  Sender: FDA-Public Use
  Company Number: ES-BRISTOL-MYERS SQUIBB COMPANY-20750626

PATIENT
  Age: 47 Year
  Sex: Female

DRUGS (1)
  1. TRIGON-DEPOT-INJ [Suspect]
     Dates: start: 2009

REACTIONS (2)
  - Blindness unilateral [Not Recovered/Not Resolved]
  - Thrombosis [Not Recovered/Not Resolved]
